FAERS Safety Report 8605737-6 (Version None)
Quarter: 2012Q3

REPORT INFORMATION
  Report Type: 
  Country: None (occurrence: None)
  Receive Date: 20120820
  Receipt Date: 20120809
  Transmission Date: 20120928
  Serious: Yes (Hospitalization)
  Sender: FDA-Public Use
  Company Number: BE-JNJFOC-20120410888

PATIENT
  Sex: Male

DRUGS (45)
  1. LITICAN [Concomitant]
     Indication: VOMITING
     Route: 042
     Dates: start: 20120604, end: 20120607
  2. LITICAN [Concomitant]
     Route: 042
     Dates: start: 20120515, end: 20120520
  3. ZOLPIDEM TATRATE [Concomitant]
     Route: 048
     Dates: start: 20120605
  4. VANCOCIN HYDROCHLORIDE [Concomitant]
     Indication: INFECTION
     Route: 042
     Dates: start: 20120603, end: 20120606
  5. VANCOCIN HYDROCHLORIDE [Concomitant]
     Route: 042
     Dates: start: 20120608, end: 20120608
  6. LEVOFLOXACIN [Concomitant]
     Indication: LUNG INFECTION
     Route: 048
     Dates: start: 20120614, end: 20120619
  7. LEVOFLOXACIN [Concomitant]
     Route: 048
     Dates: start: 20120613, end: 20120613
  8. CLINDAMYCIN HCL [Concomitant]
     Route: 048
     Dates: start: 20120614, end: 20120620
  9. ACETAMINOPHEN [Concomitant]
     Indication: PNEUMOTHORAX
     Route: 042
     Dates: start: 20120606, end: 20120606
  10. ACETAMINOPHEN [Concomitant]
     Route: 042
     Dates: start: 20120514, end: 20120523
  11. LYSOMUCIL [Concomitant]
     Indication: BRONCHITIS
     Route: 048
     Dates: start: 20120401, end: 20120401
  12. LITICAN [Concomitant]
     Indication: MALAISE
     Route: 042
     Dates: start: 20120515, end: 20120520
  13. PIPERACILLIN/TAZOBACTAM [Concomitant]
     Indication: INFECTION
     Route: 042
     Dates: start: 20120613, end: 20120613
  14. VANCOCIN HYDROCHLORIDE [Concomitant]
     Route: 042
     Dates: start: 20120606, end: 20120606
  15. VANCOCIN HYDROCHLORIDE [Concomitant]
     Route: 042
     Dates: start: 20120607, end: 20120607
  16. CLINDAMYCIN HCL [Concomitant]
     Indication: LUNG INFECTION
     Route: 048
     Dates: start: 20120613, end: 20120613
  17. OMEPRAZOLE (PRISOLEC) [Concomitant]
     Indication: PROPHYLAXIS
     Route: 042
     Dates: start: 20120604, end: 20120606
  18. SOLU-CORTEF [Concomitant]
     Indication: LUNG INFECTION
     Route: 042
     Dates: start: 20120605, end: 20120605
  19. ABIRATERONE ACETATE [Suspect]
     Route: 048
  20. MONUROL [Concomitant]
     Indication: URINARY TRACT INFECTION
     Dosage: ONCE ONLY
     Route: 048
     Dates: start: 20120401, end: 20120401
  21. LITICAN [Concomitant]
     Indication: NAUSEA
     Route: 042
     Dates: start: 20120604, end: 20120607
  22. SOLU-CORTEF [Concomitant]
     Route: 042
     Dates: start: 20120606, end: 20120606
  23. ZOMETA [Concomitant]
     Indication: PROSTATE CANCER
     Route: 065
     Dates: start: 20061201
  24. RANITIDINE [Concomitant]
     Indication: DYSPEPSIA
     Route: 048
     Dates: start: 20110923
  25. DUOVENT [Concomitant]
     Indication: BRONCHITIS
     Route: 055
     Dates: start: 20120401, end: 20120401
  26. DAFALGAN FORTE [Concomitant]
     Indication: CANCER PAIN
     Route: 048
     Dates: start: 20120301
  27. LITICAN [Concomitant]
     Route: 042
     Dates: start: 20120603, end: 20120606
  28. VANCOCIN HYDROCHLORIDE [Concomitant]
     Route: 042
     Dates: start: 20120613, end: 20120613
  29. TRAMADOL HCL [Concomitant]
     Indication: PNEUMOTHORAX
     Route: 042
     Dates: start: 20120515, end: 20120520
  30. LITICAN [Concomitant]
     Route: 042
     Dates: start: 20120604, end: 20120607
  31. LITICAN [Concomitant]
     Route: 042
     Dates: start: 20120515, end: 20120520
  32. LITICAN [Concomitant]
     Route: 042
     Dates: start: 20120603, end: 20120606
  33. ENOXAPARIN SODIUM [Concomitant]
     Indication: PULMONARY EMBOLISM
     Route: 058
     Dates: start: 20120606, end: 20120614
  34. POTASSIUM CHLORIDE [Concomitant]
     Indication: BLOOD POTASSIUM DECREASED
     Route: 042
     Dates: start: 20120605, end: 20120612
  35. ZOLADEX [Concomitant]
     Indication: HORMONE THERAPY
     Route: 058
     Dates: start: 20061201
  36. CALCIUM AND VITAMIN D3 [Concomitant]
     Indication: PROPHYLAXIS
     Route: 048
     Dates: start: 20110418
  37. AMOXICILLIN [Concomitant]
     Indication: BRONCHITIS
     Route: 048
     Dates: start: 20120401, end: 20120401
  38. ZOLPIDEM TATRATE [Concomitant]
     Indication: INSOMNIA
     Route: 048
     Dates: start: 20120515, end: 20120516
  39. PIPERACILLIN/TAZOBACTAM [Concomitant]
     Route: 042
     Dates: start: 20120603, end: 20120612
  40. VANCOCIN HYDROCHLORIDE [Concomitant]
     Route: 042
     Dates: start: 20120609, end: 20120612
  41. ABIRATERONE ACETATE [Suspect]
     Indication: PROSTATE CANCER METASTATIC
     Route: 048
     Dates: start: 20100204, end: 20120712
  42. PREDNISOLONE [Suspect]
     Indication: PROSTATE CANCER METASTATIC
     Route: 048
     Dates: start: 20100204
  43. ACETAMINOPHEN [Concomitant]
     Route: 042
     Dates: start: 20120611, end: 20120611
  44. LITICAN [Concomitant]
     Route: 042
     Dates: start: 20120603, end: 20120606
  45. VANCOCIN HYDROCHLORIDE [Concomitant]
     Route: 042
     Dates: start: 20120602, end: 20120603

REACTIONS (4)
  - PNEUMOTHORAX [None]
  - BACK PAIN [None]
  - LUNG INFECTION [None]
  - MALAISE [None]
